FAERS Safety Report 17783365 (Version 2)
Quarter: 2020Q2

REPORT INFORMATION
  Report Type: Spontaneous
  Country: US (occurrence: US)
  Receive Date: 20200514
  Receipt Date: 20200622
  Transmission Date: 20200714
  Serious: No
  Sender: FDA-Public Use
  Company Number: US-PFIZER INC-2020192058

PATIENT
  Age: 57 Year
  Sex: Male

DRUGS (1)
  1. RETACRIT [Suspect]
     Active Substance: EPOETIN ALFA-EPBX
     Indication: IRON DEFICIENCY ANAEMIA
     Dosage: 40000 IU/ML, EVERY 14 DAYS

REACTIONS (2)
  - Off label use [Unknown]
  - Product use in unapproved indication [Unknown]
